FAERS Safety Report 8381086-9 (Version None)
Quarter: 2012Q1

REPORT INFORMATION
  Report Type: 
  Country: None (occurrence: None)
  Receive Date: 20120323
  Receipt Date: 20110606
  Transmission Date: 20120608
  Serious: Yes (Hospitalization, Other)
  Sender: FDA-Public Use
  Company Number: 163-21880-11032952

PATIENT
  Age: 57 Year
  Sex: Male

DRUGS (26)
  1. REVLIMID [Suspect]
     Indication: MULTIPLE MYELOMA
     Dosage: SEE IMAGE
     Route: 048
     Dates: start: 20080324, end: 20080630
  2. REVLIMID [Suspect]
     Indication: MULTIPLE MYELOMA
     Dosage: SEE IMAGE
     Route: 048
     Dates: start: 20110318
  3. REVLIMID [Suspect]
     Indication: MULTIPLE MYELOMA
     Dosage: SEE IMAGE
     Route: 048
     Dates: start: 20070413, end: 20070418
  4. REVLIMID [Suspect]
     Indication: MULTIPLE MYELOMA
     Dosage: SEE IMAGE
     Route: 048
     Dates: start: 20100628, end: 20110110
  5. REVLIMID [Suspect]
     Indication: MULTIPLE MYELOMA
     Dosage: SEE IMAGE
     Route: 048
     Dates: start: 20090601
  6. REVLIMID [Suspect]
     Indication: MULTIPLE MYELOMA
     Dosage: SEE IMAGE
     Route: 048
     Dates: start: 20110208, end: 20110308
  7. VELCADE [Concomitant]
  8. ANZEMET [Concomitant]
  9. PHENERGAN HCL [Concomitant]
  10. ASPIRIN [Concomitant]
  11. COMPAZINE [Concomitant]
  12. EFFEXOR XR [Concomitant]
  13. PERCOCET [Concomitant]
  14. ACETAMINOPHEN [Concomitant]
  15. DEXAMETHASONE [Concomitant]
  16. ZETIA [Concomitant]
  17. IMODIUM [Concomitant]
  18. CRESTOR [Concomitant]
  19. BYSTOLIC [Concomitant]
  20. BENADRYL [Concomitant]
  21. VENOFER [Concomitant]
  22. SENOKOT-S (SENOKOT-S) [Concomitant]
  23. DOXIL (DOXORUBICI HYDROCHLORIDE) [Concomitant]
  24. CARDIZEM CD [Concomitant]
  25. NEURONTIN [Concomitant]
  26. PACKED CELLS (BLOOD CELLS, PACKED HUMAN) [Concomitant]

REACTIONS (12)
  - PNEUMONIA [None]
  - HAEMOPTYSIS [None]
  - RENAL FAILURE [None]
  - HYPOXIA [None]
  - ANAEMIA [None]
  - STAPHYLOCOCCAL BACTERAEMIA [None]
  - DEEP VEIN THROMBOSIS [None]
  - COAGULOPATHY [None]
  - RENAL FAILURE ACUTE [None]
  - PANCYTOPENIA [None]
  - DEHYDRATION [None]
  - ACTIVATED PARTIAL THROMBOPLASTIN TIME PROLONGED [None]
